FAERS Safety Report 25089244 (Version 1)
Quarter: 2025Q1

REPORT INFORMATION
  Report Type: Spontaneous
  Country: US (occurrence: None)
  Receive Date: 20250317
  Receipt Date: 20250317
  Transmission Date: 20250409
  Serious: Yes (Hospitalization)
  Sender: FDA-CTU
  Company Number: None

PATIENT
  Age: 64 Year
  Sex: Male

DRUGS (2)
  1. DABIGATRAN ETEXILATE [Suspect]
     Active Substance: DABIGATRAN ETEXILATE
     Indication: Atrial fibrillation
  2. BENAZEPRIL [Suspect]
     Active Substance: BENAZEPRIL HYDROCHLORIDE

REACTIONS (8)
  - Constipation [None]
  - Diarrhoea [None]
  - Rectal haemorrhage [None]
  - Rectal tenesmus [None]
  - Haemorrhoids [None]
  - Acute kidney injury [None]
  - Urinary retention [None]
  - Therapy interrupted [None]

NARRATIVE: CASE EVENT DATE: 20250211
